FAERS Safety Report 5408327-1 (Version None)
Quarter: 2007Q3

REPORT INFORMATION
  Report Type: 
  Country: None (occurrence: None)
  Receive Date: 20070806
  Receipt Date: 20070806
  Transmission Date: 20080115
  Serious: Yes (Hospitalization)
  Sender: FDA-Public Use
  Company Number: None

PATIENT
  Sex: Male
  Weight: 68.04 kg

DRUGS (1)
  1. CISPLATIN [Suspect]
     Dosage: 400 MG
     Dates: start: 20070702

REACTIONS (9)
  - ACUTE PRERENAL FAILURE [None]
  - ASTHENIA [None]
  - DEHYDRATION [None]
  - HYPERNATRAEMIA [None]
  - HYPOVOLAEMIA [None]
  - MUCOSAL INFLAMMATION [None]
  - ODYNOPHAGIA [None]
  - ORAL INTAKE REDUCED [None]
  - RENAL FAILURE ACUTE [None]
